FAERS Safety Report 14079476 (Version 1)
Quarter: 2017Q4

REPORT INFORMATION
  Report Type: Spontaneous
  Country: DE (occurrence: DE)
  Receive Date: 20171012
  Receipt Date: 20171012
  Transmission Date: 20180321
  Serious: Yes (Other)
  Sender: FDA-Public Use
  Company Number: DE-TEVA-812915GER

PATIENT
  Sex: Male

DRUGS (1)
  1. COTRIM FORTE-RATIOPHARM 960MG TABLETTEN [Suspect]
     Active Substance: SULFAMETHOXAZOLE\TRIMETHOPRIM
     Indication: DEVICE RELATED INFECTION

REACTIONS (1)
  - Haemorrhage [Unknown]
